FAERS Safety Report 6585711-4 (Version None)
Quarter: 2010Q1

REPORT INFORMATION
  Report Type: 
  Country: None (occurrence: None)
  Receive Date: 20100217
  Receipt Date: 20100205
  Transmission Date: 20100710
  Serious: Yes (Hospitalization)
  Sender: FDA-Public Use
  Company Number: IT-WYE-H13477710

PATIENT
  Age: 83 Year
  Sex: Female

DRUGS (9)
  1. CORDARONE [Suspect]
     Indication: ATRIAL FIBRILLATION
     Route: 048
     Dates: start: 20081001, end: 20090622
  2. LASIX [Concomitant]
     Indication: ESSENTIAL HYPERTENSION
     Route: 048
  3. ALDACTONE [Concomitant]
     Indication: ESSENTIAL HYPERTENSION
     Route: 048
  4. ENAPREN [Concomitant]
     Indication: ESSENTIAL HYPERTENSION
     Route: 048
  5. MADOPAR [Concomitant]
     Indication: PARKINSON'S DISEASE
     Route: 048
  6. COUMADIN [Concomitant]
     Indication: ATRIAL FIBRILLATION
     Route: 048
  7. MINITRAN [Concomitant]
     Indication: ANGINA PECTORIS
     Dosage: 1 UNIT EVERY 1 DAY
     Route: 062
  8. LANOXIN [Interacting]
     Indication: ATRIAL FIBRILLATION
     Route: 048
     Dates: start: 20081001, end: 20090622
  9. LANSOPRAZOLE [Concomitant]
     Dosage: 1 UNIT EVERY 1 DAY
     Route: 048

REACTIONS (3)
  - BRADYCARDIA [None]
  - CIRCULATORY COLLAPSE [None]
  - DRUG INTERACTION [None]
